FAERS Safety Report 8904178 (Version 2)
Quarter: 2013Q1

REPORT INFORMATION
  Report Type: Spontaneous
  Country: LB (occurrence: LB)
  Receive Date: 20121112
  Receipt Date: 20130124
  Transmission Date: 20140127
  Serious: Yes (Death)
  Sender: FDA-Public Use
  Company Number: LB-CELGENEUS-093-20785-11090459

PATIENT
  Sex: Male

DRUGS (5)
  1. THALIDOMIDE CELGENE [Suspect]
     Indication: MYELOFIBROSIS
     Dosage: 50 MILLIGRAM
     Route: 048
     Dates: start: 201001, end: 201112
  2. EPREX [Concomitant]
     Indication: ANAEMIA
     Route: 058
     Dates: start: 200907, end: 201112
  3. PREDNISONE [Concomitant]
     Indication: HAEMOLYTIC ANAEMIA
     Route: 048
     Dates: start: 200907, end: 201112
  4. ARANESP [Concomitant]
     Indication: MYELOFIBROSIS
     Route: 058
     Dates: start: 200909
  5. AGRYLIN [Concomitant]
     Indication: HAEMOLYTIC ANAEMIA
     Route: 048
     Dates: start: 200907

REACTIONS (1)
  - Myelodysplastic syndrome [Fatal]
